FAERS Safety Report 18627225 (Version 1)
Quarter: 2020Q4

REPORT INFORMATION
  Report Type: Spontaneous
  Country: GB (occurrence: GB)
  Receive Date: 20201217
  Receipt Date: 20201217
  Transmission Date: 20210114
  Serious: Yes (Disabling)
  Sender: FDA-Public Use
  Company Number: GB-MYLANLABS-2020M1100759

PATIENT
  Age: 83 Year
  Sex: Female
  Weight: 97 kg

DRUGS (13)
  1. ALENDRONATE [Suspect]
     Active Substance: ALENDRONATE SODIUM
     Indication: PRODUCT USED FOR UNKNOWN INDICATION
     Dosage: 70 MILLIGRAM, QW,WITH PLENTY OF WATER
     Route: 048
     Dates: start: 20200812
  2. FOLIC ACID. [Concomitant]
     Active Substance: FOLIC ACID
     Dosage: 1 DOSAGE FORM, QD
     Dates: start: 20200317
  3. VISCOTEARS [Concomitant]
     Active Substance: CARBOMER
     Indication: DRY EYE
     Dosage: UNK, PRN
     Dates: start: 20161207
  4. PARACETAMOL [Concomitant]
     Active Substance: ACETAMINOPHEN
     Dosage: TAKE ONE OR TWO TABLETS UP TO FOUR TIMES A DAY
     Dates: start: 20200701
  5. LACTULOSE. [Concomitant]
     Active Substance: LACTULOSE
     Dosage: TAKE TWO TO THREE 5ML SPOONFULS TWICE A DAY
     Dates: start: 20200701
  6. ADCAL                              /07357001/ [Concomitant]
     Active Substance: CALCIUM CARBONATE
     Indication: OSTEOPOROSIS PROPHYLAXIS
     Dosage: 2 DOSAGE FORM, QD,TO PROTECT BONES WH
     Dates: start: 20200710
  7. FLUTICASONE. [Concomitant]
     Active Substance: FLUTICASONE
     Dosage: PUFFS
     Dates: start: 20161207
  8. SALBUTAMOL [Concomitant]
     Active Substance: ALBUTEROL
     Dosage: 2 PUFFS AS REQUIRED UP TO QDS
     Dates: start: 20161207
  9. BIMATOPROST. [Concomitant]
     Active Substance: BIMATOPROST
     Dosage: 1 GTT DROPS, QD
     Dates: start: 20161207
  10. DORZOLAMIDE HYDROCHLORIDE. [Concomitant]
     Active Substance: DORZOLAMIDE HYDROCHLORIDE
     Dosage: TO THE LEFT EYE
     Dates: start: 20161207
  11. RAMIPRIL. [Concomitant]
     Active Substance: RAMIPRIL
     Dosage: 1 DOSAGE FORM, QD
     Dates: start: 20190128
  12. BRIMONIDINE TARTRATE. [Concomitant]
     Active Substance: BRIMONIDINE TARTRATE
     Dosage: TO THE LEFT EYE
     Dates: start: 20161207
  13. PREDNISOLONE. [Concomitant]
     Active Substance: PREDNISOLONE
     Dosage: FOUR TO BE TAKEN ONCE DAILY FOR 6 WEEKS (TOTAL DOSE 9MG ONCE DAILY)
     Dates: start: 20201009

REACTIONS (2)
  - Suicidal ideation [Unknown]
  - Depressed mood [Recovered/Resolved]

NARRATIVE: CASE EVENT DATE: 20201103
